FAERS Safety Report 5312530-9 (Version None)
Quarter: 2007Q2

REPORT INFORMATION
  Report Type: 
  Country: None (occurrence: None)
  Receive Date: 20070430
  Receipt Date: 20070112
  Transmission Date: 20071010
  Serious: No
  Sender: FDA-Public Use
  Company Number: 2007UW00662

PATIENT
  Age: 62 Year
  Sex: Female
  Weight: 82.8 kg

DRUGS (5)
  1. NEXIUM [Suspect]
     Indication: DYSPEPSIA
     Route: 048
     Dates: start: 20030101
  2. THYROID TAB [Concomitant]
  3. PROLEX [Concomitant]
  4. EFFEXOR [Concomitant]
  5. ABILIFY [Concomitant]

REACTIONS (3)
  - DYSPEPSIA [None]
  - SLEEP DISORDER [None]
  - STOMACH DISCOMFORT [None]
